FAERS Safety Report 6774836-6 (Version None)
Quarter: 2010Q2

REPORT INFORMATION
  Report Type: 
  Country: None (occurrence: None)
  Receive Date: 20100617
  Receipt Date: 20100607
  Transmission Date: 20101027
  Serious: Yes (Other)
  Sender: FDA-Public Use
  Company Number: PHHY2010GB21762

PATIENT
  Sex: Female

DRUGS (2)
  1. CLOZARIL [Suspect]
     Indication: SCHIZOPHRENIA
     Dosage: 450MG DAILY
     Route: 048
     Dates: start: 20090809
  2. CLOZARIL [Suspect]
     Dosage: 450MG IN ERROR
     Route: 048

REACTIONS (1)
  - INCORRECT DOSE ADMINISTERED [None]
